FAERS Safety Report 5313019-3 (Version None)
Quarter: 2007Q2

REPORT INFORMATION
  Report Type: 
  Country: None (occurrence: None)
  Receive Date: 20070424
  Receipt Date: 20070416
  Transmission Date: 20071010
  Serious: Yes (Hospitalization)
  Sender: FDA-Public Use
  Company Number: 2007SP001347

PATIENT
  Age: 81 Year
  Sex: Male
  Weight: 69.8539 kg

DRUGS (6)
  1. LUNESTA [Suspect]
     Indication: INSOMNIA
     Dosage: SEE IMAGE
     Route: 048
     Dates: start: 20070301, end: 20070331
  2. LUNESTA [Suspect]
     Indication: INSOMNIA
     Dosage: SEE IMAGE
     Route: 048
     Dates: start: 20070401
  3. HYDROCHLOROTHIAZIDE [Concomitant]
  4. ZETIA [Concomitant]
  5. COREG [Concomitant]
  6. DETROL [Concomitant]

REACTIONS (3)
  - OEDEMA PERIPHERAL [None]
  - PULMONARY OEDEMA [None]
  - SOMNOLENCE [None]
